FAERS Safety Report 7658444-0 (Version None)
Quarter: 2011Q3

REPORT INFORMATION
  Report Type: 
  Country: None (occurrence: None)
  Receive Date: 20110802
  Receipt Date: 20110725
  Transmission Date: 20111222
  Serious: Yes (Hospitalization)
  Sender: FDA-Public Use
  Company Number: HCTZ-11-06

PATIENT
  Age: 80 Year
  Sex: Female

DRUGS (3)
  1. HYDROCHLOROTHIAZIDE [Suspect]
     Indication: HYPERTENSION
     Dosage: 50MG/DAY
  2. PROPYLTHIOURACIL [Concomitant]
  3. LISINOPRIL [Concomitant]

REACTIONS (8)
  - BLOOD PRESSURE DIASTOLIC DECREASED [None]
  - BRAIN OEDEMA [None]
  - HYPONATRAEMIA [None]
  - GAIT DISTURBANCE [None]
  - POLYDIPSIA [None]
  - BLOOD POTASSIUM DECREASED [None]
  - DIARRHOEA [None]
  - ASTHENIA [None]
